FAERS Safety Report 7644527-8 (Version None)
Quarter: 2011Q3

REPORT INFORMATION
  Report Type: 
  Country: None (occurrence: None)
  Receive Date: 20110729
  Receipt Date: 20110722
  Transmission Date: 20111222
  Serious: Yes (Other)
  Sender: FDA-Public Use
  Company Number: US-JNJFOC-20110600565

PATIENT
  Sex: Male

DRUGS (9)
  1. LEVAQUIN [Suspect]
     Route: 048
     Dates: start: 20090501, end: 20090601
  2. LEVAQUIN [Suspect]
     Route: 048
  3. LEVAQUIN [Suspect]
     Indication: URINARY TRACT INFECTION
     Route: 048
     Dates: start: 20090101
  4. LEVAQUIN [Suspect]
     Indication: BACTERIAL INFECTION
     Route: 048
     Dates: start: 20090101
  5. CIPROFLOXACIN [Suspect]
     Indication: SINUSITIS
     Route: 065
  6. LEVAQUIN [Suspect]
     Route: 048
     Dates: start: 20090501, end: 20090601
  7. LEVAQUIN [Suspect]
     Indication: RESPIRATORY TRACT INFECTION
     Route: 048
     Dates: start: 20090101
  8. LEVAQUIN [Suspect]
     Route: 048
  9. LEVAQUIN [Suspect]
     Route: 048
     Dates: start: 20090501, end: 20090601

REACTIONS (2)
  - TENDON RUPTURE [None]
  - ROTATOR CUFF SYNDROME [None]
